FAERS Safety Report 13742071 (Version 1)
Quarter: 2017Q3

REPORT INFORMATION
  Report Type: Spontaneous
  Country: JP (occurrence: JP)
  Receive Date: 20170711
  Receipt Date: 20170711
  Transmission Date: 20171127
  Serious: Yes (Disabling, Other)
  Sender: FDA-Public Use
  Company Number: PHHY2010JP09112

PATIENT
  Age: 57 Year
  Sex: Male

DRUGS (11)
  1. MIKELAN LA 2% [Suspect]
     Active Substance: CARTEOLOL HYDROCHLORIDE
     Indication: GLAUCOMA
     Dosage: 1 GTT, BID
     Route: 047
     Dates: start: 20090831, end: 20100103
  2. DIAMOX SEQUELS [Concomitant]
     Active Substance: ACETAZOLAMIDE
     Dosage: UNK
     Dates: start: 20090831
  3. CRAVIT [Concomitant]
     Active Substance: LEVOFLOXACIN
     Dosage: UNK
     Dates: start: 20080115
  4. PREDONINE [Concomitant]
     Active Substance: PREDNISOLONE
     Dosage: UNK
     Dates: start: 20080208
  5. GASTER [Concomitant]
     Active Substance: FAMOTIDINE
     Dosage: UNK
     Dates: start: 20080208
  6. AZOPT [Concomitant]
     Active Substance: BRINZOLAMIDE
     Dosage: UNK
     Dates: start: 20090406
  7. FLUMETHOLON [Concomitant]
     Active Substance: FLUOROMETHOLONE
     Dosage: UNK
     Dates: start: 20091005
  8. LUMIGAN [Suspect]
     Active Substance: BIMATOPROST
     Indication: GLAUCOMA
     Dosage: 1 GTT, QD
     Route: 047
     Dates: start: 20091109, end: 20100103
  9. RINDERON V [Concomitant]
     Active Substance: BETAMETHASONE VALERATE
     Dosage: UNK
     Dates: end: 20091005
  10. TRAVATAN [Concomitant]
     Active Substance: TRAVOPROST
     Dosage: UNK
     Dates: end: 20091109
  11. GLUCONSAN K [Concomitant]
     Active Substance: POTASSIUM GLUCONATE
     Dosage: UNK
     Dates: start: 20090831

REACTIONS (6)
  - Corneal oedema [Not Recovered/Not Resolved]
  - Intraocular pressure increased [Not Recovered/Not Resolved]
  - Eye operation [Unknown]
  - Optic nerve disorder [Unknown]
  - Headache [Unknown]
  - Visual acuity reduced [Not Recovered/Not Resolved]

NARRATIVE: CASE EVENT DATE: 20091005
